FAERS Safety Report 8804165 (Version 1)
Quarter: 2012Q4

REPORT INFORMATION
  Report Type: 
  Country: IN (occurrence: IN)
  Receive Date: 20120924
  Receipt Date: 20120924
  Transmission Date: 20130627
  Serious: Yes (Death, Hospitalization)
  Sender: FDA-Public Use
  Company Number: IN-SANOFI-AVENTIS-2012SA066644

PATIENT
  Age: 43 Year
  Sex: Female

DRUGS (2)
  1. TAXOTERE [Suspect]
     Indication: BREAST CANCER
     Dosage: cycle: 1-3
     Route: 042
     Dates: start: 20120627
  2. TAXOTERE [Suspect]
     Indication: BREAST CANCER
     Route: 065
     Dates: start: 20120903, end: 20120903

REACTIONS (3)
  - Neutropenia [Fatal]
  - Pyrexia [Fatal]
  - Dyspnoea [Unknown]
